FAERS Safety Report 8448495-0 (Version None)
Quarter: 2012Q2

REPORT INFORMATION
  Report Type: 
  Country: None (occurrence: None)
  Receive Date: 20120619
  Receipt Date: 20120611
  Transmission Date: 20120825
  Serious: Yes (Hospitalization)
  Sender: FDA-Public Use
  Company Number: FR-ROCHE-1077514

PATIENT
  Sex: Female

DRUGS (8)
  1. PREDNISONE TAB [Suspect]
     Indication: B-CELL LYMPHOMA
     Dosage: LAST DOSE PRIOR TO THE SAE ON 07/MAR/2009
     Route: 042
     Dates: start: 20090303, end: 20090527
  2. DOXORUBICIN HCL [Suspect]
     Indication: B-CELL LYMPHOMA
     Dosage: LAST DOSE PRIOR TO THE SAE ON 04/MAR/2009
     Route: 042
     Dates: start: 20090304, end: 20090527
  3. METHOTREXATE [Suspect]
     Indication: B-CELL LYMPHOMA
     Dosage: LAST DOSE PRIOR TO THE SAE ON 03/MAR/2009
     Route: 042
     Dates: start: 20090303, end: 20090527
  4. CYCLOPHOSPHAMIDE [Suspect]
     Indication: B-CELL LYMPHOMA
     Dosage: LAST DOSE PRIOR TO THE SAE ON 06/MAR/2009
     Route: 042
     Dates: start: 20090304, end: 20090527
  5. LEUCOVORIN CALCIUM [Suspect]
     Indication: B-CELL LYMPHOMA
     Dosage: LAST DOSE PRIOR TO THE SAE ON 06/MAR/2009
     Route: 042
     Dates: start: 20090304, end: 20090527
  6. MABTHERA [Suspect]
     Indication: B-CELL LYMPHOMA
     Dosage: L
     Route: 042
     Dates: start: 20090303, end: 20090303
  7. VINCRISTINE SULFATE [Suspect]
     Indication: B-CELL LYMPHOMA
     Dosage: LAST DOSE PRIOR TO THE SAE ON 03/MAR/2009
     Route: 042
     Dates: start: 20090303, end: 20090527
  8. CYTARABINE [Suspect]
     Indication: B-CELL LYMPHOMA
     Dosage: L
     Route: 042
     Dates: start: 20090305, end: 20090305

REACTIONS (1)
  - GENERAL PHYSICAL CONDITION ABNORMAL [None]
